FAERS Safety Report 18120902 (Version 1)
Quarter: 2020Q3

REPORT INFORMATION
  Report Type: Spontaneous
  Country: FR (occurrence: FR)
  Receive Date: 20200807
  Receipt Date: 20200807
  Transmission Date: 20201103
  Serious: Yes (Hospitalization)
  Sender: FDA-Public Use
  Company Number: FR-AUROBINDO-AUR-APL-2015-01858

PATIENT
  Age: 72 Year
  Sex: Male

DRUGS (2)
  1. AMIODARONE [Suspect]
     Active Substance: AMIODARONE
     Indication: ATRIAL FIBRILLATION
     Dosage: 200 MG, DAILY
     Route: 065
  2. DABIGATRAN [Interacting]
     Active Substance: DABIGATRAN
     Indication: ATRIAL FIBRILLATION
     Dosage: 150 MG, TWO TIMES A DAY
     Route: 065

REACTIONS (6)
  - Activated partial thromboplastin time prolonged [Unknown]
  - Epistaxis [Unknown]
  - Prothrombin time ratio decreased [Unknown]
  - Drug interaction [Unknown]
  - Respiratory distress [Unknown]
  - Haemorrhage [Unknown]
